FAERS Safety Report 8122779 (Version 3)
Quarter: 2017Q3

REPORT INFORMATION
  Report Type: Report from Study
  Country: JP (occurrence: JP)
  Receive Date: 20110906
  Receipt Date: 20170921
  Transmission Date: 20171128
  Serious: Yes (Hospitalization)
  Sender: FDA-Public Use
  Company Number: JP-PFIZER INC-2011134788

PATIENT
  Age: 32 Year
  Sex: Female
  Weight: 48 kg

DRUGS (5)
  1. CRIZOTINIB [Suspect]
     Active Substance: CRIZOTINIB
     Indication: NON-SMALL CELL LUNG CANCER
     Dosage: 500 MG, DAILY
     Route: 048
     Dates: start: 20110413, end: 20110420
  2. CRIZOTINIB [Suspect]
     Active Substance: CRIZOTINIB
     Dosage: 150 MG, 2X/DAY
     Route: 048
     Dates: start: 20110510, end: 20110617
  3. CALONAL [Concomitant]
     Active Substance: ACETAMINOPHEN
     Indication: CANCER PAIN
     Dosage: 600 MG, AS NEEDED
     Route: 048
     Dates: start: 20101118
  4. MYSER [Concomitant]
     Active Substance: DIFLUPREDNATE
     Indication: DRY SKIN
     Dosage: UNK, AS NEEDED
     Route: 061
     Dates: start: 20110413
  5. HACHIAZULE [Concomitant]
     Indication: PROPHYLAXIS
     Dosage: UNK, AS NEEDED
     Route: 049
     Dates: start: 20110613

REACTIONS (1)
  - Interstitial lung disease [Recovered/Resolved]

NARRATIVE: CASE EVENT DATE: 20110617
